FAERS Safety Report 19473297 (Version 1)
Quarter: 2021Q2

REPORT INFORMATION
  Report Type: Spontaneous
  Country: PL (occurrence: PL)
  Receive Date: 20210629
  Receipt Date: 20210629
  Transmission Date: 20210717
  Serious: Yes (Death, Other)
  Sender: FDA-Public Use
  Company Number: PL-SA-2021SA212883

PATIENT
  Age: 85 Year
  Sex: Male

DRUGS (1)
  1. OMNIC [Suspect]
     Active Substance: TAMSULOSIN HYDROCHLORIDE
     Indication: BENIGN PROSTATIC HYPERPLASIA
     Dosage: UNK UNK, UNKNOWN FREQ.

REACTIONS (5)
  - Dizziness [Unknown]
  - Palpitations [Unknown]
  - Headache [Unknown]
  - Circulatory collapse [Fatal]
  - Pruritus [Unknown]
